FAERS Safety Report 22660723 (Version 1)
Quarter: 2023Q2

REPORT INFORMATION
  Report Type: Spontaneous
  Country: US (occurrence: None)
  Receive Date: 20230630
  Receipt Date: 20230630
  Transmission Date: 20230722
  Serious: Yes (Other)
  Sender: FDA-Public Use
  Company Number: None

PATIENT
  Sex: Female
  Weight: 95.4 kg

DRUGS (4)
  1. MOLNUPIRAVIR [Suspect]
     Active Substance: MOLNUPIRAVIR
     Indication: COVID-19
     Dosage: FREQUENCY : TWICE A DAY;?
     Route: 048
     Dates: start: 20230623, end: 20230623
  2. MUCINEX [Concomitant]
     Active Substance: GUAIFENESIN
  3. LOVASTATIN [Concomitant]
     Active Substance: LOVASTATIN
  4. JARDIANCE [Concomitant]
     Active Substance: EMPAGLIFLOZIN

REACTIONS (4)
  - Hypoaesthesia oral [None]
  - Hypoaesthesia oral [None]
  - Intranasal hypoaesthesia [None]
  - Fatigue [None]
